FAERS Safety Report 8312907-3 (Version None)
Quarter: 2012Q2

REPORT INFORMATION
  Report Type: 
  Country: None (occurrence: None)
  Receive Date: 20120424
  Receipt Date: 20120411
  Transmission Date: 20120825
  Serious: Yes (Hospitalization, Other)
  Sender: FDA-Public Use
  Company Number: USA/UKI/12/0023976

PATIENT
  Age: 63 Year
  Sex: Male

DRUGS (4)
  1. AMLODIPINE [Concomitant]
  2. SIMVASTATIN [Concomitant]
  3. OMEPRAZOLE [Suspect]
     Indication: GASTROOESOPHAGEAL REFLUX DISEASE
     Dosage: 20 MG, 2 IN 1 D, UNKNOWN
  4. LANSOPRAZOLE [Suspect]
     Indication: GASTROOESOPHAGEAL REFLUX DISEASE
     Dosage: 30 MG, 1 D

REACTIONS (29)
  - DIARRHOEA [None]
  - BLOOD BICARBONATE DECREASED [None]
  - BLOOD PH DECREASED [None]
  - HELICOBACTER INFECTION [None]
  - BARRETT'S OESOPHAGUS [None]
  - CONVULSION [None]
  - PO2 INCREASED [None]
  - BLOOD LACTIC ACID INCREASED [None]
  - DEHYDRATION [None]
  - DRUG INEFFECTIVE [None]
  - IMPAIRED WORK ABILITY [None]
  - HEART RATE INCREASED [None]
  - NEUTROPHIL COUNT INCREASED [None]
  - BLOOD POTASSIUM DECREASED [None]
  - LETHARGY [None]
  - MYOCLONUS [None]
  - ACUTE PRERENAL FAILURE [None]
  - RENAL TUBULAR DISORDER [None]
  - ALCOHOL USE [None]
  - BLOOD CALCIUM DECREASED [None]
  - URINE MAGNESIUM DECREASED [None]
  - ACHLORHYDRIA [None]
  - VOMITING [None]
  - MELAENA [None]
  - COMA SCALE ABNORMAL [None]
  - BASE EXCESS INCREASED [None]
  - GASTRITIS EROSIVE [None]
  - HYPOMAGNESAEMIA [None]
  - BLOOD GLUCOSE INCREASED [None]
